FAERS Safety Report 6558923-3 (Version None)
Quarter: 2010Q1

REPORT INFORMATION
  Report Type: 
  Country: None (occurrence: None)
  Receive Date: 20100129
  Receipt Date: 20100125
  Transmission Date: 20100710
  Serious: Yes (Other)
  Sender: FDA-Public Use
  Company Number: FR-PFIZER INC-2010010990

PATIENT
  Age: 64 Year
  Sex: Male

DRUGS (2)
  1. TAHOR [Suspect]
     Indication: DYSLIPIDAEMIA
     Dosage: UNK
     Dates: start: 20091215
  2. COVERSYL [Concomitant]
     Dosage: UNK

REACTIONS (2)
  - BLADDER NEOPLASM SURGERY [None]
  - THROMBOCYTOPENIA [None]
